FAERS Safety Report 12495356 (Version 1)
Quarter: 2016Q2

REPORT INFORMATION
  Report Type: Spontaneous
  Country: US (occurrence: None)
  Receive Date: 20160623
  Receipt Date: 20160623
  Transmission Date: 20160815
  Serious: No
  Sender: FDA-Public Use
  Company Number: None

PATIENT
  Age: 69 Year
  Sex: Male
  Weight: 49.5 kg

DRUGS (2)
  1. METHADONE [Suspect]
     Active Substance: METHADONE HYDROCHLORIDE
     Indication: PAIN
     Route: 048
     Dates: start: 20080226, end: 20160520
  2. SERTRALINE [Suspect]
     Active Substance: SERTRALINE HYDROCHLORIDE
     Indication: DEPRESSION
     Route: 048
     Dates: start: 20160514, end: 20160518

REACTIONS (5)
  - Respiratory failure [None]
  - Blood glucose decreased [None]
  - Mental status changes [None]
  - Delirium [None]
  - Osteomyelitis [None]

NARRATIVE: CASE EVENT DATE: 20160518
